FAERS Safety Report 18058770 (Version 2)
Quarter: 2020Q3

REPORT INFORMATION
  Report Type: Spontaneous
  Country: FR (occurrence: FR)
  Receive Date: 20200723
  Receipt Date: 20200826
  Transmission Date: 20201103
  Serious: Yes (Death, Hospitalization)
  Sender: FDA-Public Use
  Company Number: FR-MYLANLABS-2020M1064927

PATIENT
  Age: 67 Year
  Sex: Male

DRUGS (2)
  1. CLOFARABINE MYLAN [Suspect]
     Active Substance: CLOFARABINE
     Indication: ACUTE MYELOID LEUKAEMIA
     Dosage: 30 MILLIGRAM/SQ. METER, QD
     Route: 041
     Dates: start: 20200617, end: 20200620
  2. CYTARABINE ACCORD [Concomitant]
     Active Substance: CYTARABINE
     Indication: ACUTE MYELOID LEUKAEMIA
     Dosage: 1000 MILLIGRAM/SQ. METER, QD
     Route: 041
     Dates: start: 20200617, end: 20200620

REACTIONS (3)
  - Acute kidney injury [Fatal]
  - Proteinuria [Fatal]
  - Anuria [Fatal]

NARRATIVE: CASE EVENT DATE: 20200619
